FAERS Safety Report 8957072 (Version 1)
Quarter: 2012Q4

REPORT INFORMATION
  Report Type: 
  Country: US (occurrence: US)
  Receive Date: 20121211
  Receipt Date: 20121211
  Transmission Date: 20130627
  Serious: No
  Sender: FDA-Public Use
  Company Number: US-009507513-1212USA002070

PATIENT
  Sex: Female

DRUGS (2)
  1. INTRONA [Suspect]
     Indication: MALIGNANT MELANOMA
     Dosage: 20 million unit per meter squared
     Dates: start: 20120820, end: 2012
  2. INTRONA [Suspect]
     Dosage: 10 million unit per meter squared
     Dates: start: 2012, end: 201210

REACTIONS (4)
  - Nausea [Unknown]
  - Fatigue [Unknown]
  - Abdominal discomfort [Unknown]
  - Alopecia [Unknown]
